FAERS Safety Report 5700976-6 (Version None)
Quarter: 2008Q2

REPORT INFORMATION
  Report Type: 
  Country: None (occurrence: None)
  Receive Date: 20080410
  Receipt Date: 20080403
  Transmission Date: 20081010
  Serious: Yes (Hospitalization, Disabling)
  Sender: FDA-Public Use
  Company Number: US-ROCHE-515381

PATIENT
  Sex: Male
  Weight: 98.2 kg

DRUGS (15)
  1. PEGASYS [Suspect]
     Dosage: DOSE BLINDED.
     Route: 058
     Dates: start: 20070507, end: 20070730
  2. PEGASYS [Suspect]
     Dosage: DOSAGE FORM: VIAL. 180 MCG IN 1 ML SOLUTION ADMINISTERED SUBCUTANEOUS ONCE WEEKLY FOR 36 WEEKS. FOR+
     Route: 058
     Dates: start: 20070731, end: 20070904
  3. RIBAVIRIN [Suspect]
     Dosage: DOSE BLINDED.
     Route: 048
     Dates: start: 20070507, end: 20070730
  4. RIBAVIRIN [Suspect]
     Route: 048
     Dates: start: 20070731, end: 20070904
  5. LAMICTAL [Suspect]
     Indication: DRUG USE FOR UNKNOWN INDICATION
     Route: 065
  6. CYMBALTA [Suspect]
     Indication: DRUG USE FOR UNKNOWN INDICATION
     Route: 065
  7. KEPPRA [Suspect]
     Indication: DRUG USE FOR UNKNOWN INDICATION
     Route: 065
  8. DYAZIDE [Suspect]
     Indication: DRUG USE FOR UNKNOWN INDICATION
     Route: 065
  9. DYAZIDE [Suspect]
     Route: 065
  10. ACIPHEX [Suspect]
     Indication: DRUG USE FOR UNKNOWN INDICATION
     Route: 065
  11. PREDNISONE [Suspect]
     Indication: DRUG USE FOR UNKNOWN INDICATION
     Route: 065
  12. SINGULAIR [Concomitant]
  13. ALBUTEROL [Concomitant]
  14. MULTIVITAMIN NOS [Concomitant]
  15. UNSPECIFIED DRUG [Concomitant]
     Dosage: NEBULIZER.

REACTIONS (2)
  - GAIT DISTURBANCE [None]
  - RETINAL DETACHMENT [None]
